FAERS Safety Report 12339055 (Version 1)
Quarter: 2016Q2

REPORT INFORMATION
  Report Type: Spontaneous
  Country: DK (occurrence: DK)
  Receive Date: 20160505
  Receipt Date: 20160505
  Transmission Date: 20160815
  Serious: Yes (Hospitalization)
  Sender: FDA-Public Use
  Company Number: PHHY2016DK059086

PATIENT
  Sex: Female

DRUGS (2)
  1. RIMACTAN [Suspect]
     Active Substance: RIFAMPIN
     Indication: WOUND INFECTION STAPHYLOCOCCAL
     Dosage: 300 MG, TID STYRKE: 300 MG.
     Route: 048
     Dates: start: 20130708, end: 20130822
  2. FUCIDIN                                 /SCH/ [Suspect]
     Active Substance: FUSIDATE SODIUM
     Indication: WOUND INFECTION STAPHYLOCOCCAL
     Dosage: 500 MG, TID STYRKE: 250 MG.
     Route: 048
     Dates: start: 20130708, end: 20130822

REACTIONS (26)
  - Coordination abnormal [None]
  - Dehydration [Recovered/Resolved]
  - Pyrexia [Recovered/Resolved]
  - Areflexia [None]
  - Limb discomfort [None]
  - Weight decreased [None]
  - Wound infection staphylococcal [None]
  - Diarrhoea [Recovered/Resolved]
  - Oedema peripheral [None]
  - Hypoaesthesia [None]
  - Neuritis [None]
  - Clostridium difficile colitis [Recovered/Resolved]
  - Paraesthesia [None]
  - Mobility decreased [None]
  - Fine motor skill dysfunction [None]
  - Musculoskeletal pain [None]
  - Duodenitis [Recovered/Resolved]
  - Gait disturbance [None]
  - Nausea [Recovered/Resolved]
  - Pseudarthrosis [None]
  - Muscular weakness [None]
  - Hiatus hernia [None]
  - Hypotension [Recovered/Resolved]
  - General physical health deterioration [Recovered/Resolved]
  - Vomiting [Recovered/Resolved]
  - Polyneuropathy [None]

NARRATIVE: CASE EVENT DATE: 2013
